FAERS Safety Report 9566987 (Version 1)
Quarter: 2013Q3

REPORT INFORMATION
  Report Type: Spontaneous
  Country: US (occurrence: US)
  Receive Date: 20130930
  Receipt Date: 20130930
  Transmission Date: 20140515
  Serious: No
  Sender: FDA-Public Use
  Company Number: US-AMGEN-USASP2012061122

PATIENT
  Age: 63 Year
  Sex: Female
  Weight: 85.26 kg

DRUGS (8)
  1. ENBREL [Suspect]
     Indication: PRODUCT USED FOR UNKNOWN INDICATION
     Dosage: 50 MG, UNK
     Route: 058
  2. ETODOLAC [Concomitant]
     Dosage: 300 MG, UNK
  3. PLAQUENIL                          /00072602/ [Concomitant]
     Dosage: 200 MG, UNK
  4. METHOTREXATE [Concomitant]
     Dosage: 2.5 MG, UNK
  5. CRESTOR [Concomitant]
     Dosage: 10 MG, UNK
  6. SYNTHROID [Concomitant]
     Dosage: 25 MUG, UNK
  7. MONOPRIL HCT [Concomitant]
     Dosage: 10/12.5
  8. DILTIAZEM [Concomitant]
     Dosage: 240 MG CD

REACTIONS (2)
  - Supraventricular tachycardia [Unknown]
  - Lymphadenopathy [Unknown]
